FAERS Safety Report 9824178 (Version 1)
Quarter: 2014Q1

REPORT INFORMATION
  Report Type: Spontaneous
  Country: JP (occurrence: JP)
  Receive Date: 20140116
  Receipt Date: 20140116
  Transmission Date: 20141002
  Serious: Yes (Other)
  Sender: FDA-Public Use
  Company Number: JP-GLAXOSMITHKLINE-B0952779A

PATIENT
  Age: 63 Year
  Sex: Female

DRUGS (6)
  1. LAMICTAL [Suspect]
     Indication: DEPRESSION
     Dosage: 25MG PER DAY
     Route: 048
     Dates: start: 20131015, end: 20131028
  2. LAMICTAL [Suspect]
     Indication: DEPRESSION
     Dosage: 25MG TWICE PER DAY
     Route: 048
     Dates: start: 20131029, end: 20131110
  3. DEPROMEL [Concomitant]
     Indication: DEPRESSION
     Dosage: 50MG TWICE PER DAY
     Route: 048
  4. LIMAS [Concomitant]
     Indication: MANIA
     Dosage: 100MG TWICE PER DAY
     Route: 048
  5. LEXOTAN [Concomitant]
     Indication: ANXIETY
     Dosage: 2MG TWICE PER DAY
     Route: 048
  6. LENDORMIN [Concomitant]
     Indication: POOR QUALITY SLEEP
     Dosage: .25MG PER DAY
     Route: 048

REACTIONS (12)
  - Drug eruption [Recovered/Resolved]
  - Rash generalised [Recovered/Resolved]
  - Paraesthesia oral [Unknown]
  - Laryngeal discomfort [Recovered/Resolved]
  - Rash [Recovered/Resolved]
  - Erythema [Recovered/Resolved]
  - Erythema [Recovered/Resolved]
  - Lip blister [Unknown]
  - Lip swelling [Recovering/Resolving]
  - Stomatitis [Unknown]
  - Oral pain [Unknown]
  - Rash generalised [Recovered/Resolved]
